FAERS Safety Report 18163348 (Version 1)
Quarter: 2020Q3

REPORT INFORMATION
  Report Type: Report from Study
  Country: NL (occurrence: NL)
  Receive Date: 20200818
  Receipt Date: 20200818
  Transmission Date: 20201103
  Serious: Yes (Hospitalization)
  Sender: FDA-Public Use
  Company Number: NL-TEVA-2020-NL-1815355

PATIENT
  Age: 40 Year
  Sex: Female

DRUGS (2)
  1. CISPLATINE INFOPL CONC 0,5MG/ML ? NON?CURRENT DRUG / BRAND NAME NOT SP [Suspect]
     Active Substance: CISPLATIN
     Indication: CERVIX CARCINOMA
     Route: 065
     Dates: start: 20110404, end: 20110426
  2. MAPATUMUMAB. [Interacting]
     Active Substance: MAPATUMUMAB
     Indication: CERVIX CARCINOMA
     Dosage: THE PATIENT HAS RECEIVED 2 DOSES OF MAPATUMUMAB AT 10 MG / KG AT 3?WEEK INTERVALS
     Route: 065
     Dates: start: 20110328, end: 20110419

REACTIONS (3)
  - Vaginal ulceration [Recovering/Resolving]
  - Drug interaction [Unknown]
  - Cystitis [Recovering/Resolving]

NARRATIVE: CASE EVENT DATE: 20111108
